FAERS Safety Report 9275839 (Version 1)
Quarter: 2013Q2

REPORT INFORMATION
  Report Type: Spontaneous
  Country: IT (occurrence: IT)
  Receive Date: 20130507
  Receipt Date: 20130507
  Transmission Date: 20140414
  Serious: Yes (Hospitalization)
  Sender: FDA-Public Use
  Company Number: IT-TEVA-402607ISR

PATIENT
  Age: 91 Year
  Sex: Female

DRUGS (1)
  1. ALPRAZOLAM [Suspect]
     Indication: AGITATION
     Dosage: 20 GTT DAILY;
     Route: 048
     Dates: start: 20130226, end: 20130226

REACTIONS (1)
  - Toxicity to various agents [Recovered/Resolved]
